FAERS Safety Report 13825478 (Version 2)
Quarter: 2017Q3

REPORT INFORMATION
  Report Type: Report from Study
  Country: AU (occurrence: AU)
  Receive Date: 20170802
  Receipt Date: 20170821
  Transmission Date: 20171127
  Serious: Yes (Other)
  Sender: FDA-Public Use
  Company Number: AU-REGENERON PHARMACEUTICALS, INC.-2017-15112

PATIENT

DRUGS (5)
  1. TRAJENTA [Concomitant]
     Active Substance: LINAGLIPTIN
     Dosage: 5 MG, QD
  2. EYLEA [Suspect]
     Active Substance: AFLIBERCEPT
     Indication: DIABETIC RETINAL OEDEMA
     Dosage: INJECTION IN BOTH EYES
     Route: 031
     Dates: start: 20160621
  3. INSULIN [Concomitant]
     Active Substance: INSULIN NOS
     Dosage: 10 IU, QD
  4. INSULIN [Concomitant]
     Active Substance: INSULIN NOS
     Indication: PRODUCT USED FOR UNKNOWN INDICATION
     Dosage: 145 IU, QD
  5. TRAJENTA [Concomitant]
     Active Substance: LINAGLIPTIN
     Indication: PRODUCT USED FOR UNKNOWN INDICATION
     Dosage: 5 MG, QD

REACTIONS (8)
  - Cataract operation [Recovering/Resolving]
  - Drug ineffective [Unknown]
  - Injection site discomfort [Recovered/Resolved]
  - Cataract [Recovering/Resolving]
  - Eye infection [Recovering/Resolving]
  - Varices oesophageal [Recovering/Resolving]
  - Metamorphopsia [Not Recovered/Not Resolved]
  - Ocular discomfort [Not Recovered/Not Resolved]

NARRATIVE: CASE EVENT DATE: 201612
